FAERS Safety Report 7537520-7 (Version None)
Quarter: 2011Q2

REPORT INFORMATION
  Report Type: 
  Country: None (occurrence: None)
  Receive Date: 20110609
  Receipt Date: 20070516
  Transmission Date: 20111010
  Serious: Yes (Death, Hospitalization)
  Sender: FDA-Public Use
  Company Number: PHMT2007CA00955

PATIENT
  Sex: Male

DRUGS (8)
  1. DIAZEPAM [Concomitant]
     Dosage: 10 MG, Q4H PRN
     Dates: start: 20070309
  2. FLURAZEPAM [Concomitant]
     Dosage: 30 MG, QHS
     Dates: start: 20070309
  3. VALPROATE SODIUM [Concomitant]
     Dosage: 750 MG, UNK
  4. CLONAZEPAM [Concomitant]
     Dosage: 2 MG BID AND QHS
     Dates: start: 20070309
  5. CLOZAPINE [Suspect]
     Dosage: 400 MG, QHS
     Route: 048
     Dates: start: 19980101
  6. TOPAMAX [Concomitant]
     Dosage: 100 MG QAM AND 200 MG QHS
  7. ZYPREXA [Concomitant]
     Dosage: 10 MG, TID
     Dates: start: 20070309
  8. TEGRETOL [Concomitant]
     Dosage: 200 MG, TID
     Dates: start: 20070309

REACTIONS (2)
  - DEATH [None]
  - AGGRESSION [None]
